FAERS Safety Report 8540701 (Version 4)
Quarter: 2012Q4

REPORT INFORMATION
  Report Type: 
  Country: US (occurrence: US)
  Receive Date: 20120502
  Receipt Date: 20121127
  Transmission Date: 20130627
  Serious: Yes (Hospitalization)
  Sender: FDA-Public Use
  Company Number: US-BAYER-2012-041938

PATIENT
  Age: 32 Year
  Sex: Female
  Weight: 56.69 kg

DRUGS (6)
  1. YAZ [Suspect]
     Indication: CONTRACEPTION
     Dosage: UNK
     Dates: start: 20070406, end: 20100517
  2. LEVOTHYROXINE [Concomitant]
     Indication: HYPOTHYROIDISM
     Dosage: 125 ?g, UNK
     Dates: start: 20081104, end: 20110122
  3. BIAXIN [Concomitant]
     Indication: SINUSITIS
     Dosage: Daily
     Dates: start: 20100510, end: 20100517
  4. PREDNISONE [Concomitant]
     Indication: SINUSITIS
     Dosage: Daily
     Dates: start: 20100510, end: 20100517
  5. ZYRTEC [Concomitant]
  6. PRILOSEC [Concomitant]

REACTIONS (8)
  - Pulmonary embolism [None]
  - Pulmonary infarction [None]
  - Injury [None]
  - Emotional distress [None]
  - Pain [None]
  - Anxiety [None]
  - Anhedonia [None]
  - General physical health deterioration [None]
